FAERS Safety Report 6724418-7 (Version None)
Quarter: 2010Q2

REPORT INFORMATION
  Report Type: 
  Country: None (occurrence: None)
  Receive Date: 20100513
  Receipt Date: 20100503
  Transmission Date: 20101027
  Serious: Yes (Other)
  Sender: FDA-Public Use
  Company Number: FR-PFIZER INC-2010056620

PATIENT
  Age: 46 Year
  Sex: Female

DRUGS (5)
  1. ATARAX [Suspect]
     Indication: URTICARIA CHRONIC
     Dosage: 25 MG, UNK
     Route: 048
     Dates: start: 20081001, end: 20090301
  2. ATARAX [Interacting]
     Dosage: 0.5 DF TO 1 DF DAILY
     Route: 048
     Dates: start: 20081001, end: 20090301
  3. ATARAX [Interacting]
     Dosage: 25 MG, AS NEEDED
     Route: 048
     Dates: start: 20090301, end: 20090901
  4. ATARAX [Interacting]
     Dosage: 0.5 DF TO 1 DF ONLY IF CRISIS
     Route: 048
     Dates: start: 20090301, end: 20090901
  5. AERIUS [Interacting]
     Indication: URTICARIA CHRONIC
     Dosage: 1 DF, 1X/DAY
     Route: 048
     Dates: start: 20081001, end: 20091201

REACTIONS (2)
  - DRUG INTERACTION [None]
  - EXTRAPYRAMIDAL DISORDER [None]
